FAERS Safety Report 8515079-5 (Version None)
Quarter: 2012Q3

REPORT INFORMATION
  Report Type: 
  Country: None (occurrence: None)
  Receive Date: 20120717
  Receipt Date: 20120710
  Transmission Date: 20120928
  Serious: No
  Sender: FDA-Public Use
  Company Number: US-B.I. PHARMACEUTICALS,INC./RIDGEFIELD-2011-BP-24400BP

PATIENT
  Sex: Female
  Weight: 105.27 kg

DRUGS (1)
  1. TRADJENTA [Suspect]
     Dosage: 5 MG
     Route: 048
     Dates: start: 20110930, end: 20111010

REACTIONS (1)
  - FACE OEDEMA [None]
